FAERS Safety Report 4930837-1 (Version None)
Quarter: 2006Q1

REPORT INFORMATION
  Report Type: 
  Country: None (occurrence: None)
  Receive Date: 20060227
  Receipt Date: 20060210
  Transmission Date: 20060701
  Serious: Yes (Hospitalization, Other)
  Sender: FDA-Public Use
  Company Number: 2006-0009147

PATIENT
  Age: 54 Year
  Sex: Male
  Weight: 56 kg

DRUGS (4)
  1. VIREAD [Suspect]
     Dosage: 300 MG, 1 IN 1 D, ORAL
     Route: 048
  2. ATAZANAVIR (ATAZANAVIR) [Concomitant]
  3. RITONAVIR (RITONAVIR) [Concomitant]
  4. DIDANOSINE [Concomitant]

REACTIONS (9)
  - BLOOD PHOSPHORUS DECREASED [None]
  - DEHYDRATION [None]
  - FANCONI SYNDROME [None]
  - FATIGUE [None]
  - METABOLIC ACIDOSIS [None]
  - NEPHROGENIC DIABETES INSIPIDUS [None]
  - RENAL TUBULAR ACIDOSIS [None]
  - RENAL TUBULAR NECROSIS [None]
  - WEIGHT DECREASED [None]
